FAERS Safety Report 5642920-6 (Version None)
Quarter: 2008Q1

REPORT INFORMATION
  Report Type: 
  Country: None (occurrence: None)
  Receive Date: 20080227
  Receipt Date: 20080227
  Transmission Date: 20080703
  Serious: Yes (Other)
  Sender: FDA-Public Use
  Company Number: None

PATIENT
  Age: 47 Year
  Sex: Male
  Weight: 87.0906 kg

DRUGS (1)
  1. IBUPROFEN [Suspect]
     Indication: PAIN IN EXTREMITY
     Dates: start: 20080213, end: 20080214

REACTIONS (2)
  - AGGRESSION [None]
  - ANGER [None]
